FAERS Safety Report 10986310 (Version 1)
Quarter: 2015Q2

REPORT INFORMATION
  Report Type: Spontaneous
  Country: CH (occurrence: None)
  Receive Date: 20150402
  Receipt Date: 20150402
  Transmission Date: 20150821
  Serious: Yes (Hospitalization)
  Sender: FDA-Public Use
  Company Number: 201505290

PATIENT
  Age: 86 Year
  Sex: Female

DRUGS (12)
  1. MARCOUMAR (PHENPROCOUMON) [Suspect]
     Active Substance: PHENPROCOUMON
     Indication: ATRIAL FIBRILLATION
     Route: 048
     Dates: start: 200103, end: 201408
  2. BILOL (BISOPROLOL FUMARATE) [Concomitant]
  3. SERTRALINE [Concomitant]
     Active Substance: SERTRALINE HYDROCHLORIDE
  4. ARICEPT [Concomitant]
     Active Substance: DONEPEZIL HYDROCHLORIDE
  5. AMLODIPINE [Concomitant]
     Active Substance: AMLODIPINE BESYLATE
  6. TRITTICO (TRAZODONE HYDROCHLORIDE) [Concomitant]
     Active Substance: TRAZODONE HYDROCHLORIDE
  7. FRAGMIN [Suspect]
     Active Substance: DALTEPARIN SODIUM
     Indication: TIBIA FRACTURE
     Route: 058
     Dates: start: 20140808, end: 201408
  8. GYNO-TARDYFERON (ASCORBIC ACID, FERROUS SULFATE, FOLIC ACID, PROTEASE) [Concomitant]
  9. CO AMOXIN (AMOXICILLIN TRIHYDRATE) [Concomitant]
  10. ACIDUM FOLICUM (FOLIC ACID) [Concomitant]
  11. ESOMEP (OMEPRAZOLE) [Concomitant]
  12. NOVALGIN [Concomitant]
     Active Substance: METAMIZOLE SODIUM

REACTIONS (5)
  - Gastrointestinal haemorrhage [None]
  - Melaena [None]
  - Drug interaction [None]
  - International normalised ratio increased [None]
  - Haemorrhagic anaemia [None]

NARRATIVE: CASE EVENT DATE: 201408
